FAERS Safety Report 15926025 (Version 1)
Quarter: 2019Q1

REPORT INFORMATION
  Report Type: Spontaneous
  Country: US (occurrence: US)
  Receive Date: 20190206
  Receipt Date: 20190206
  Transmission Date: 20190417
  Serious: Yes (Other)
  Sender: FDA-Public Use
  Company Number: None

PATIENT
  Age: 76 Year
  Sex: Female
  Weight: 67.46 kg

DRUGS (13)
  1. POMALYST [Concomitant]
     Active Substance: POMALIDOMIDE
  2. ATENOLOL. [Concomitant]
     Active Substance: ATENOLOL
  3. VITAMIN D [Concomitant]
     Active Substance: CHOLECALCIFEROL
  4. NINLARO [Suspect]
     Active Substance: IXAZOMIB CITRATE
     Indication: PLASMA CELL MYELOMA
     Dosage: ?          OTHER FREQUENCY:ONCE WEEKLY;?
     Route: 048
     Dates: start: 20190107
  5. TURMERIC [Concomitant]
     Active Substance: HERBALS\TURMERIC
  6. AMLODIPINE [Concomitant]
     Active Substance: AMLODIPINE BESYLATE
  7. LEXAPRO [Concomitant]
     Active Substance: ESCITALOPRAM OXALATE
  8. PAMIDRONATE [Concomitant]
     Active Substance: PAMIDRONATE DISODIUM
  9. MOTRIN [Concomitant]
     Active Substance: IBUPROFEN
  10. ASA [Concomitant]
     Active Substance: ASPIRIN
  11. VITAMIN B12 [Concomitant]
     Active Substance: CYANOCOBALAMIN
  12. DEXAMETHASONE. [Concomitant]
     Active Substance: DEXAMETHASONE
  13. ACYCLOVIR. [Concomitant]
     Active Substance: ACYCLOVIR

REACTIONS (1)
  - Disease progression [None]
